FAERS Safety Report 8595301 (Version 4)
Quarter: 2012Q4

REPORT INFORMATION
  Report Type: Report from Study
  Country: JP (occurrence: JP)
  Receive Date: 20120604
  Receipt Date: 20120910
  Transmission Date: 20130627
  Serious: Yes (Death, Hospitalization)
  Sender: FDA-Public Use
  Company Number: JP-GILEAD-2012-0055934

PATIENT
  Age: 55 Year
  Sex: Male

DRUGS (5)
  1. TENOFOVIR DISOPROXIL FUMARATE [Suspect]
     Indication: HIV INFECTION
     Dosage: 300 mg, QD
     Route: 048
     Dates: start: 20060907, end: 20111222
  2. RITONAVIR [Suspect]
     Indication: HIV INFECTION
     Dosage: 100 mg, QD
     Route: 048
     Dates: start: 20060105, end: 20111222
  3. EPIVIR [Suspect]
     Indication: HIV INFECTION
     Dosage: 150 mg, BID
     Route: 048
     Dates: start: 20060907, end: 20111222
  4. LEXIVA [Suspect]
     Indication: HIV INFECTION
     Dosage: 700 mg, BID
     Dates: start: 20090205, end: 20111222
  5. KOGENATE FS [Concomitant]
     Dosage: UNK
     Dates: end: 20111222

REACTIONS (2)
  - Gastrointestinal haemorrhage [Fatal]
  - Small intestine carcinoma [Unknown]
